FAERS Safety Report 6881919-9 (Version None)
Quarter: 2010Q3

REPORT INFORMATION
  Report Type: 
  Country: None (occurrence: None)
  Receive Date: 20100729
  Receipt Date: 20100726
  Transmission Date: 20110219
  Serious: Yes (Hospitalization)
  Sender: FDA-Public Use
  Company Number: US-PERRIGO-10US011239

PATIENT
  Sex: Male
  Weight: 86.168 kg

DRUGS (7)
  1. NAPROXEN SODIUM [Suspect]
     Indication: ARTHRALGIA
     Dosage: 4 TABLETS/DAILY, PRN
     Route: 048
     Dates: start: 20100612
  2. LISINOPRIL [Concomitant]
     Indication: HYPERTENSION
     Dosage: UNK
     Route: 048
     Dates: start: 20100101
  3. METOPROLOL TARTRATE [Concomitant]
     Indication: HYPERTENSION
     Dosage: UNK
     Route: 048
     Dates: start: 20100101
  4. SYNTHROID [Concomitant]
     Indication: HYPOTHYROIDISM
     Dosage: UNK
     Route: 048
  5. VITAMIN D3 [Concomitant]
     Indication: VITAMIN D DECREASED
     Dosage: 5000 UNITS
     Route: 048
     Dates: end: 20100705
  6. VITAMIN B [Concomitant]
     Indication: SUPPLEMENTATION THERAPY
     Dosage: UNK
     Route: 060
     Dates: end: 20100705
  7. ASCORBIC ACID [Concomitant]
     Indication: SUPPLEMENTATION THERAPY
     Dosage: UNK
     Route: 065
     Dates: end: 20100705

REACTIONS (4)
  - CONDITION AGGRAVATED [None]
  - INCORRECT DOSE ADMINISTERED [None]
  - LOCALISED OEDEMA [None]
  - MUSCLE SPASMS [None]
